FAERS Safety Report 7294625-6 (Version None)
Quarter: 2011Q1

REPORT INFORMATION
  Report Type: 
  Country: None (occurrence: None)
  Receive Date: 20110202
  Receipt Date: 20110121
  Transmission Date: 20110831
  Serious: Yes (Other)
  Sender: FDA-Public Use
  Company Number: 2011P1003844

PATIENT
  Age: 78 Year
  Sex: Male
  Weight: 49.8957 kg

DRUGS (6)
  1. PREV MEDS [Concomitant]
  2. FLUOCINONIDE OINTMENT USP 0.05% (NO PREF. NAME) [Suspect]
     Indication: ECZEMA
     Dosage: SEE IMAGE
     Route: 061
     Dates: start: 20101130, end: 20101210
  3. FLUOCINONIDE OINTMENT USP 0.05% (NO PREF. NAME) [Suspect]
     Indication: ECZEMA
     Dosage: SEE IMAGE
     Route: 061
     Dates: start: 20101210, end: 20101220
  4. FLUOCINONIDE OINTMENT USP 0.05% (NO PREF. NAME) [Suspect]
     Indication: ECZEMA
     Dosage: SEE IMAGE
     Route: 061
     Dates: start: 20101220, end: 20101230
  5. FLUOCINONIDE OINTMENT USP 0.05% (NO PREF. NAME) [Suspect]
     Indication: ECZEMA
     Dosage: SEE IMAGE
     Route: 061
     Dates: start: 20110101, end: 20110101
  6. VITAMIN TAB [Concomitant]

REACTIONS (2)
  - INTRAOCULAR PRESSURE INCREASED [None]
  - VISION BLURRED [None]
